FAERS Safety Report 4746070-2 (Version None)
Quarter: 2005Q3

REPORT INFORMATION
  Report Type: 
  Country: None (occurrence: None)
  Receive Date: 20050816
  Receipt Date: 20050802
  Transmission Date: 20060218
  Serious: Yes (Life-Threatening)
  Sender: FDA-Public Use
  Company Number: US-ROCHE-412597

PATIENT
  Age: 47 Year
  Sex: Male
  Weight: 59 kg

DRUGS (12)
  1. PEG-INTERFERON ALFA 2A (RO 25-8310) [Suspect]
     Indication: HEPATITIS C
     Dosage: LAST DOSE PRIOR TO SAE WAS REPORTED AS 13 JUNE 2005.
     Route: 058
     Dates: start: 20050418, end: 20050627
  2. RIBAVIRIN [Suspect]
     Indication: HEPATITIS C
     Dosage: LAST DOSE PRIOR TO SAE REPORTED AS 9 MAY 2005.
     Route: 048
     Dates: start: 20050418, end: 20050516
  3. PROGRAF [Suspect]
     Route: 065
     Dates: start: 20050112
  4. SEPTRA [Concomitant]
     Dates: start: 20050224
  5. FOLIC ACID [Concomitant]
     Dates: start: 20050115
  6. TOPROL-XL [Concomitant]
     Dates: start: 20050115
  7. NEXIUM [Concomitant]
     Dates: start: 20050115
  8. COLACE [Concomitant]
     Dates: start: 20050115
  9. URSODIOL [Concomitant]
     Dates: start: 20050115
  10. PREDNISONE [Concomitant]
     Dates: start: 20050112
  11. FE [Concomitant]
     Dates: start: 20050115
  12. NORVASC [Concomitant]
     Dates: start: 20050629

REACTIONS (6)
  - DEHYDRATION [None]
  - IMMUNOSUPPRESSANT DRUG LEVEL INCREASED [None]
  - NAUSEA [None]
  - RENAL FAILURE [None]
  - THERAPEUTIC AGENT TOXICITY [None]
  - VOMITING [None]
